FAERS Safety Report 24578276 (Version 1)
Quarter: 2024Q4

REPORT INFORMATION
  Report Type: Spontaneous
  Country: CO (occurrence: CO)
  Receive Date: 20241105
  Receipt Date: 20241105
  Transmission Date: 20250114
  Serious: Yes (Other)
  Sender: AMGEN
  Company Number: CO-AMGEN-COLSP2024213807

PATIENT
  Age: 11 Year
  Sex: Male

DRUGS (4)
  1. BLINATUMOMAB [Suspect]
     Active Substance: BLINATUMOMAB
     Indication: Acute lymphocytic leukaemia
     Dosage: UNK, TWO CYCLES
     Route: 065
     Dates: start: 2023
  2. AMPHOTERICIN B [Concomitant]
     Active Substance: AMPHOTERICIN B
     Dosage: 7.5 MILLIGRAM/KILOGRAM, QD
     Route: 065
     Dates: start: 2023
  3. VORICONAZOLE [Concomitant]
     Active Substance: VORICONAZOLE
     Dosage: 9 MILLIGRAM/KILOGRAM, Q12H
     Route: 065
     Dates: start: 2023
  4. VORICONAZOLE [Concomitant]
     Active Substance: VORICONAZOLE
     Dosage: 0.05 MILLILITER PER EYE, Q4WK

REACTIONS (3)
  - Vitreoretinal traction syndrome [Unknown]
  - Escherichia infection [Unknown]
  - General physical health deterioration [Unknown]

NARRATIVE: CASE EVENT DATE: 20230101
